FAERS Safety Report 4666441-2 (Version None)
Quarter: 2005Q2

REPORT INFORMATION
  Report Type: 
  Country: None (occurrence: None)
  Receive Date: 20050518
  Receipt Date: 20050505
  Transmission Date: 20051028
  Serious: Yes (Other)
  Sender: FDA-Public Use
  Company Number: 2005072157

PATIENT
  Age: 80 Year
  Sex: Female
  Weight: 79.8331 kg

DRUGS (10)
  1. BEXTRA [Suspect]
     Indication: ARTHRITIS
     Dosage: (1 ), ORAL
     Route: 048
     Dates: start: 20041228, end: 20041229
  2. METOPROLOL TARTRATE [Concomitant]
  3. AMLODIPINE BESYLATE [Concomitant]
  4. ESOMEPRAZOLE (ESOMEPRAZOLE) [Concomitant]
  5. RALOXIFENE HCL [Concomitant]
  6. CANDESARTAN CILEXETIL (CANDESARTAN CILEXETIL) [Concomitant]
  7. SERTRALINE HCL [Concomitant]
  8. GABAPENTIN [Concomitant]
  9. FUROSEMIDE [Concomitant]
  10. POTASSIUM ACETATE [Concomitant]

REACTIONS (6)
  - APHASIA [None]
  - CHOKING [None]
  - DRY MOUTH [None]
  - DYSPNOEA [None]
  - LOCAL SWELLING [None]
  - OEDEMA MOUTH [None]
